FAERS Safety Report 6400880-4 (Version None)
Quarter: 2009Q4

REPORT INFORMATION
  Report Type: 
  Country: None (occurrence: None)
  Receive Date: 20091009
  Receipt Date: 20090928
  Transmission Date: 20100525
  Serious: Yes (Other)
  Sender: FDA-Public Use
  Company Number: 231347J09USA

PATIENT
  Age: 53 Year
  Sex: Female

DRUGS (6)
  1. REBIF [Suspect]
     Indication: MULTIPLE SCLEROSIS
     Dosage: 44 MCG, 3 IN 1 WEEKS, SUBCUTANEOUS
     Route: 058
     Dates: start: 20051101
  2. CYMBALTA [Suspect]
     Indication: PAIN IN EXTREMITY
  3. ADVIL (IBUPROFEN) [Concomitant]
  4. UNSPECIFIED PAIN MEDICATIONS (ALL OTHER THERAPEUTIC PRODUCTS) [Concomitant]
  5. REQUIP [Suspect]
     Indication: DYSKINESIA
  6. REQUIP [Suspect]
     Indication: MUSCLE SPASMS

REACTIONS (1)
  - HEPATIC ENZYME INCREASED [None]
